FAERS Safety Report 4776426-3 (Version None)
Quarter: 2005Q3

REPORT INFORMATION
  Report Type: 
  Country: None (occurrence: None)
  Receive Date: 20050922
  Receipt Date: 20050912
  Transmission Date: 20060218
  Serious: Yes (Death)
  Sender: FDA-Public Use
  Company Number: DE-ABBOTT-05P-062-0311026-00

PATIENT
  Sex: Male

DRUGS (1)
  1. VALPROIC ACID [Suspect]
     Indication: INTENTIONAL MISUSE

REACTIONS (6)
  - BRAIN OEDEMA [None]
  - COMA [None]
  - DRUG LEVEL INCREASED [None]
  - HYPERAMMONAEMIA [None]
  - MULTI-ORGAN DISORDER [None]
  - PANCREATITIS HAEMORRHAGIC [None]
